FAERS Safety Report 7203956-7 (Version None)
Quarter: 2010Q4

REPORT INFORMATION
  Report Type: 
  Country: None (occurrence: None)
  Receive Date: 20101230
  Receipt Date: 20101227
  Transmission Date: 20110411
  Serious: Yes (Life-Threatening, Hospitalization, Other)
  Sender: FDA-Public Use
  Company Number: JP-BAYER-2010-002928

PATIENT
  Sex: Male
  Weight: 56 kg

DRUGS (3)
  1. NEXAVAR [Suspect]
     Indication: RENAL CELL CARCINOMA
     Dosage: 200 MG, BID
     Route: 048
     Dates: start: 20101105, end: 20101205
  2. FENTANYL CITRATE [Concomitant]
     Dosage: 12 MG, QD
     Route: 062
     Dates: start: 20101105
  3. OXINORM [Concomitant]
     Dosage: 20 MG, QD
     Route: 048
     Dates: start: 20101105, end: 20101205

REACTIONS (3)
  - ACUTE CORONARY SYNDROME [None]
  - OESOPHAGEAL ULCER [None]
  - RENAL FAILURE ACUTE [None]
